FAERS Safety Report 25396311 (Version 1)
Quarter: 2025Q2

REPORT INFORMATION
  Report Type: Report from Study
  Country: PR (occurrence: PR)
  Receive Date: 20250604
  Receipt Date: 20250604
  Transmission Date: 20250716
  Serious: Yes (Other)
  Sender: ASTELLAS
  Company Number: PR-ASTELLAS-2025-AER-029757

PATIENT
  Age: 69 Year
  Sex: Male
  Weight: 199.58 kg

DRUGS (1)
  1. XTANDI [Suspect]
     Active Substance: ENZALUTAMIDE
     Indication: Prostate cancer
     Route: 048
     Dates: start: 20250502

REACTIONS (6)
  - Hallucination [Unknown]
  - Asthenia [Unknown]
  - Generalised oedema [Unknown]
  - Pain [Unknown]
  - Fall [Unknown]
  - Amnesia [Unknown]
